FAERS Safety Report 21321724 (Version 1)
Quarter: 2022Q3

REPORT INFORMATION
  Report Type: Spontaneous
  Country: US (occurrence: None)
  Receive Date: 20220909
  Receipt Date: 20220909
  Transmission Date: 20221026
  Serious: No
  Sender: FDA-Public Use
  Company Number: None

PATIENT
  Sex: Male

DRUGS (1)
  1. TREMFYA [Suspect]
     Active Substance: GUSELKUMAB
     Indication: Psoriasis
     Dosage: 100MG  EVERY 8 WEEKS SC?
     Route: 058
     Dates: start: 202204

REACTIONS (3)
  - Incorrect dose administered by device [None]
  - Device leakage [None]
  - Device malfunction [None]
